FAERS Safety Report 4571728-8 (Version None)
Quarter: 2005Q1

REPORT INFORMATION
  Report Type: 
  Country: None (occurrence: None)
  Receive Date: 20050202
  Receipt Date: 20050202
  Transmission Date: 20050727
  Serious: Yes (Hospitalization, Disabling)
  Sender: FDA-Public Use
  Company Number: None

PATIENT
  Sex: Male
  Weight: 97.5234 kg

DRUGS (5)
  1. ETANERCEPT    50 MG   AMGEN [Suspect]
     Indication: PSORIATIC ARTHROPATHY
     Dosage: 50 MG   WEEKLY   SUBCUTANEO
     Route: 058
     Dates: start: 20041222, end: 20050111
  2. PROTONIX 40 [Concomitant]
  3. PREDNISONE [Concomitant]
  4. ZOLOFT [Concomitant]
  5. METHOTREXATE [Concomitant]

REACTIONS (4)
  - BALANCE DISORDER [None]
  - COGNITIVE DISORDER [None]
  - LYME DISEASE [None]
  - SPEECH DISORDER [None]
